FAERS Safety Report 16843900 (Version 2)
Quarter: 2019Q4

REPORT INFORMATION
  Report Type: Spontaneous
  Country: US (occurrence: US)
  Receive Date: 20190924
  Receipt Date: 20191111
  Transmission Date: 20200122
  Serious: Yes (Other)
  Sender: FDA-Public Use
  Company Number: US-PFIZER INC-2019406407

PATIENT
  Age: 82 Year
  Sex: Male
  Weight: 63.49 kg

DRUGS (3)
  1. VYNDAQEL [Suspect]
     Active Substance: TAFAMIDIS MEGLUMINE
     Dosage: UNK
  2. TAFAMIDIS [Suspect]
     Active Substance: TAFAMIDIS MEGLUMINE
     Dosage: 61 MG, 1X/DAY
     Dates: start: 20190606, end: 20190918
  3. VYNDAQEL [Suspect]
     Active Substance: TAFAMIDIS MEGLUMINE
     Indication: AMYLOIDOSIS
     Dosage: 80 MG, 1X/DAY (FOUR 20 MG CAPSULES)
     Dates: start: 20190918

REACTIONS (3)
  - Off label use [Unknown]
  - Asthenia [Recovering/Resolving]
  - Product use in unapproved indication [Unknown]
